FAERS Safety Report 18965354 (Version 1)
Quarter: 2021Q1

REPORT INFORMATION
  Report Type: Spontaneous
  Country: US (occurrence: US)
  Receive Date: 20210304
  Receipt Date: 20210304
  Transmission Date: 20210420
  Serious: Yes (Other)
  Sender: FDA-Public Use
  Company Number: US-STRIDES ARCOLAB LIMITED-2021SP002295

PATIENT
  Age: 69 Year
  Sex: Female

DRUGS (2)
  1. GABAPENTIN. [Concomitant]
     Active Substance: GABAPENTIN
     Indication: DIABETIC NEUROPATHY
     Dosage: UNK
     Route: 065
  2. IBUPROFEN. [Suspect]
     Active Substance: IBUPROFEN
     Indication: POST-TRAUMATIC HEADACHE
     Dosage: SELF?TREATING WITH COPIOUS AMOUNTS OF IBUPROFEN
     Route: 065

REACTIONS (4)
  - Medication overuse headache [Unknown]
  - Self-medication [Unknown]
  - Repetitive strain injury [Unknown]
  - Drug ineffective [Unknown]
